FAERS Safety Report 13242874 (Version 1)
Quarter: 2017Q1

REPORT INFORMATION
  Report Type: Spontaneous
  Country: US (occurrence: US)
  Receive Date: 20170216
  Receipt Date: 20170216
  Transmission Date: 20170428
  Serious: Yes (Hospitalization)
  Sender: FDA-Public Use
  Company Number: US-VIFOR (INTERNATIONAL) INC.-VIT-2017-00339

PATIENT
  Sex: Female

DRUGS (6)
  1. CARVEDILOL. [Concomitant]
     Active Substance: CARVEDILOL
  2. ECOTRIN [Concomitant]
     Active Substance: ASPIRIN
  3. LASIX [Concomitant]
     Active Substance: FUROSEMIDE
  4. VELTASSA [Suspect]
     Active Substance: PATIROMER
     Indication: HYPERKALAEMIA
     Route: 048
     Dates: start: 20161004
  5. LISINOPRIL. [Concomitant]
     Active Substance: LISINOPRIL
  6. MILRINONE LACTATE. [Concomitant]
     Active Substance: MILRINONE LACTATE

REACTIONS (2)
  - Upper limb fracture [Unknown]
  - Fall [Unknown]
